FAERS Safety Report 11415976 (Version 1)
Quarter: 2015Q3

REPORT INFORMATION
  Report Type: Spontaneous
  Country: US (occurrence: None)
  Receive Date: 20150824
  Receipt Date: 20150824
  Transmission Date: 20151125
  Serious: Yes (Hospitalization)
  Sender: FDA-Public Use
  Company Number: None

PATIENT
  Age: 80 Year
  Sex: Female

DRUGS (21)
  1. LEVOTHYROXINE. [Concomitant]
     Active Substance: LEVOTHYROXINE
  2. VITAMIN B12 [Concomitant]
     Active Substance: CYANOCOBALAMIN
  3. PREDNISONE. [Concomitant]
     Active Substance: PREDNISONE
  4. ACETAMINOPHEN. [Concomitant]
     Active Substance: ACETAMINOPHEN
  5. ONDANSETRON [Concomitant]
     Active Substance: ONDANSETRON
  6. SIMETHICONE (DIMETHICONE) [Concomitant]
     Active Substance: DIMETHICONE
  7. LIDOCAINE. [Concomitant]
     Active Substance: LIDOCAINE
  8. DULOXETINE. [Concomitant]
     Active Substance: DULOXETINE
  9. KETOCONAZOLE. [Concomitant]
     Active Substance: KETOCONAZOLE
  10. MELATONIN [Concomitant]
     Active Substance: MELATONIN
  11. MULTIVITAMIN [Concomitant]
     Active Substance: VITAMINS
  12. METOCLOPRAMIDE HCL [Concomitant]
     Active Substance: METOCLOPRAMIDE HYDROCHLORIDE
  13. RUXOLITINIB [Suspect]
     Active Substance: RUXOLITINIB
  14. ATORVASTATIN [Concomitant]
     Active Substance: ATORVASTATIN
  15. ENOXAPARIN [Concomitant]
     Active Substance: ENOXAPARIN
  16. OMEPRAZOLE. [Concomitant]
     Active Substance: OMEPRAZOLE
  17. FISH OIL [Concomitant]
     Active Substance: FISH OIL
  18. GABAPENTIN. [Concomitant]
     Active Substance: GABAPENTIN
  19. POLYETHYLENE GLYCOL [Concomitant]
     Active Substance: POLYETHYLENE GLYCOLS
  20. PREGABALIN. [Concomitant]
     Active Substance: PREGABALIN
  21. SPIRONOLACTONE-HYDROCHLOROTHIIAZIDE [Concomitant]

REACTIONS (3)
  - Mental status changes [None]
  - Back pain [None]
  - Pain in extremity [None]

NARRATIVE: CASE EVENT DATE: 20150808
